FAERS Safety Report 25959066 (Version 1)
Quarter: 2025Q4

REPORT INFORMATION
  Report Type: Spontaneous
  Country: EU (occurrence: EU)
  Receive Date: 20251025
  Receipt Date: 20251025
  Transmission Date: 20260118
  Serious: Yes (Other)
  Sender: AMGEN
  Company Number: EU-AMGEN-SVNSP2025209815

PATIENT
  Age: 49 Year
  Sex: Male

DRUGS (5)
  1. KYPROLIS [Suspect]
     Active Substance: CARFILZOMIB
     Indication: Plasmacytoma
     Dosage: 154 MILLIGRAM, QWK
     Route: 040
     Dates: start: 202404
  2. KYPROLIS [Suspect]
     Active Substance: CARFILZOMIB
     Dosage: UNK UNK, QWK, 50% DOSE REDUCTIONS
     Route: 040
     Dates: start: 202502
  3. KYPROLIS [Suspect]
     Active Substance: CARFILZOMIB
     Dosage: 38.7 MILLIGRAM, QWK, 25% DOSE REDUCTIONS
     Route: 040
     Dates: start: 2025
  4. DARATUMUMAB [Concomitant]
     Active Substance: DARATUMUMAB
     Indication: Plasmacytoma
     Dosage: UNK
     Route: 065
     Dates: start: 202404
  5. DEXAMETHASONE [Concomitant]
     Active Substance: DEXAMETHASONE
     Indication: Plasmacytoma
     Dosage: UNK
     Route: 065
     Dates: start: 202404

REACTIONS (2)
  - Hypogammaglobulinaemia [Unknown]
  - Respiratory tract infection viral [Unknown]

NARRATIVE: CASE EVENT DATE: 20250101
